FAERS Safety Report 21090882 (Version 1)
Quarter: 2022Q3

REPORT INFORMATION
  Report Type: Spontaneous
  Country: FR (occurrence: FR)
  Receive Date: 20220716
  Receipt Date: 20220716
  Transmission Date: 20221027
  Serious: Yes (Other)
  Sender: FDA-Public Use
  Company Number: None

PATIENT
  Age: 68 Year
  Sex: Male

DRUGS (3)
  1. FLUOROURACIL [Suspect]
     Active Substance: FLUOROURACIL
     Indication: Oesophageal adenocarcinoma
     Dosage: UNIT DOSE : 2600MG/M  , FREQUENCY TIME : 1 CYCLICAL , DURATION :45 DAYS
     Dates: start: 20210920, end: 20211104
  2. OXALIPLATIN [Suspect]
     Active Substance: OXALIPLATIN
     Indication: Oesophageal adenocarcinoma
     Dosage: FORM STRENGTH : 5 MG/ML  , UNIT DOSE : 85 MG/M  , FREQUENCY TIME : 1 CYCLICAL , DURATION : 45 DAYS
     Dates: start: 20210920, end: 20211104
  3. DOCETAXEL [Suspect]
     Active Substance: DOCETAXEL
     Indication: Oesophageal adenocarcinoma
     Dosage: UNIT DOSE : 50 MG/M  , FREQUENCY TIME : 1 CYCLICAL , DURATION : 45 DAYS
     Dates: start: 20210920, end: 20211104

REACTIONS (1)
  - Polyneuropathy [Not Recovered/Not Resolved]

NARRATIVE: CASE EVENT DATE: 20211201
